FAERS Safety Report 16619538 (Version 4)
Quarter: 2022Q1

REPORT INFORMATION
  Report Type: Spontaneous
  Country: US (occurrence: US)
  Receive Date: 20190723
  Receipt Date: 20220324
  Transmission Date: 20220423
  Serious: Yes (Other)
  Sender: FDA-Public Use
  Company Number: US-009507513-1711USA003426

PATIENT
  Sex: Female
  Weight: 102.33 kg

DRUGS (14)
  1. ZOSTAVAX [Suspect]
     Active Substance: VARICELLA-ZOSTER VIRUS STRAIN OKA/MERCK LIVE ANTIGEN
     Indication: Prophylaxis
     Dosage: .65 MILLILITER
     Route: 065
     Dates: start: 20140226, end: 20140226
  2. ZOSTAVAX [Suspect]
     Active Substance: VARICELLA-ZOSTER VIRUS STRAIN OKA/MERCK LIVE ANTIGEN
     Indication: Routine health maintenance
  3. STERILE DILUENT (WATER) [Suspect]
     Active Substance: WATER
     Indication: Prophylaxis
     Dosage: UNK
     Route: 065
     Dates: start: 20140226
  4. OXYBUTYNIN [Suspect]
     Active Substance: OXYBUTYNIN
     Dosage: UNK
  5. LASIX [Suspect]
     Active Substance: FUROSEMIDE
     Indication: Oedema peripheral
     Dosage: ONE TO HALF TABLET AS NEEDED
     Route: 048
  6. METHADONE HYDROCHLORIDE [Suspect]
     Active Substance: METHADONE HYDROCHLORIDE
     Indication: Back pain
     Dosage: UNK
  7. XANAX [Suspect]
     Active Substance: ALPRAZOLAM
     Indication: Depression
     Dosage: 1 MILLIGRAM, FOUR TIMES A DAY
     Route: 048
     Dates: start: 2000
  8. XANAX [Suspect]
     Active Substance: ALPRAZOLAM
     Indication: Anxiety
  9. NORTRIPTYLINE [Suspect]
     Active Substance: NORTRIPTYLINE
     Indication: Sleep disorder
     Dosage: UNK
  10. NORTRIPTYLINE [Suspect]
     Active Substance: NORTRIPTYLINE
     Indication: Fibromyalgia
  11. NORTRIPTYLINE [Suspect]
     Active Substance: NORTRIPTYLINE
     Indication: Cystitis interstitial
  12. FLUOXETINE [Concomitant]
     Active Substance: FLUOXETINE HYDROCHLORIDE
     Indication: Depression
     Dosage: 40 MILLIGRAM, ONCE A DAY
     Dates: start: 2000
  13. LEVOTHYROXINE [Concomitant]
     Active Substance: LEVOTHYROXINE
     Indication: Hypothyroidism
     Dosage: 150 MICROGRAM, ONCE A DAY; STARTED FROM APPROXIMATELY 1990
     Dates: start: 1990
  14. ALPRAZOLAM [Concomitant]
     Active Substance: ALPRAZOLAM
     Indication: Anxiety
     Dosage: 1 MILLIGRAM, FOUR TIMES A DAY
     Route: 048
     Dates: start: 2000

REACTIONS (20)
  - Systemic lupus erythematosus [Unknown]
  - Rheumatoid arthritis [Unknown]
  - Endometrial hyperplasia [Unknown]
  - Uterine leiomyoma [Unknown]
  - Vaccination failure [Unknown]
  - Back pain [Unknown]
  - Oedema peripheral [Recovered/Resolved]
  - Urinary incontinence [Unknown]
  - Somnolence [Unknown]
  - Blood potassium decreased [Unknown]
  - Blood chloride decreased [Unknown]
  - Carbon dioxide increased [Unknown]
  - Hypomagnesaemia [Unknown]
  - Weight increased [Recovering/Resolving]
  - Sleep disorder [Unknown]
  - Hyperlipidaemia [Unknown]
  - Constipation [Unknown]
  - Herpes zoster [Recovering/Resolving]
  - Myalgia [Unknown]
  - Urinary tract infection [Unknown]

NARRATIVE: CASE EVENT DATE: 20150101
